FAERS Safety Report 4428267-4 (Version None)
Quarter: 2004Q3

REPORT INFORMATION
  Report Type: 
  Country: None (occurrence: None)
  Receive Date: 20040813
  Receipt Date: 20040805
  Transmission Date: 20050211
  Serious: Yes (Hospitalization)
  Sender: FDA-Public Use
  Company Number: 2004-08-0190

PATIENT
  Age: 20 Year
  Sex: Female
  Weight: 69 kg

DRUGS (3)
  1. CLARITIN [Suspect]
     Indication: CELLULITIS
     Dosage: 10 MG ORAL
     Route: 048
     Dates: start: 20040714, end: 20040715
  2. FLUCLOXACILLIN SODIUM [Concomitant]
  3. IBUPROFEN [Concomitant]

REACTIONS (1)
  - SOMNOLENCE [None]
